FAERS Safety Report 4661137-5 (Version None)
Quarter: 2005Q2

REPORT INFORMATION
  Report Type: 
  Country: None (occurrence: None)
  Receive Date: 20050511
  Receipt Date: 20050429
  Transmission Date: 20051028
  Serious: Yes (Other)
  Sender: FDA-Public Use
  Company Number: 2005068482

PATIENT
  Age: 84 Year
  Sex: Female

DRUGS (10)
  1. ALDACTONE [Suspect]
     Indication: ILL-DEFINED DISORDER
     Dosage: 1 DOSE FORM (DAILY), ORAL
     Dates: start: 20031215, end: 20041208
  2. RIVASTIGMINE TARTRATE [Suspect]
     Indication: ILL-DEFINED DISORDER
     Dosage: 2 DOSE FORM (DAILY), ORAL
     Route: 048
     Dates: start: 20040715, end: 20041213
  3. ACEBUTOLOL HCL [Suspect]
     Indication: ILL-DEFINED DISORDER
     Dosage: 100 MG (200 MG, DAILY), ORAL
     Route: 048
     Dates: start: 20031215
  4. RAMIPRIL [Suspect]
     Indication: ILL-DEFINED DISORDER
     Dosage: 2.5 MG (2.5 MG, DAILY), ORAL
     Dates: start: 20031215, end: 20041208
  5. FLUINDIONE (FLUINDIONE) [Concomitant]
  6. PRAVASTATIN SODIUM [Concomitant]
  7. LANSOPRAZOLE [Concomitant]
  8. RISEDRONATE SODIUM (RISEDRONATE SODIUM) [Concomitant]
  9. CALCIUM CARBONATE/COLECALCIFEROL (CALCIUM CARBONATE) [Concomitant]
  10. CYANOCOBALAMINE (CYANOCOBALAMIN) [Concomitant]

REACTIONS (20)
  - BLOOD GLUCOSE INCREASED [None]
  - BLOOD PRESSURE SYSTOLIC INCREASED [None]
  - BLOOD UREA INCREASED [None]
  - BRADYCARDIA [None]
  - BUNDLE BRANCH BLOCK RIGHT [None]
  - CREATININE RENAL CLEARANCE DECREASED [None]
  - DIARRHOEA [None]
  - DISORIENTATION [None]
  - DRUG INTERACTION POTENTIATION [None]
  - ELECTROCARDIOGRAM QT PROLONGED [None]
  - FALL [None]
  - GENERAL PHYSICAL CONDITION ABNORMAL [None]
  - HEADACHE [None]
  - INTERNATIONAL NORMALISED RATIO INCREASED [None]
  - LOSS OF CONSCIOUSNESS [None]
  - MALAISE [None]
  - MEMORY IMPAIRMENT [None]
  - MIOSIS [None]
  - PROTHROMBIN TIME PROLONGED [None]
  - VOMITING [None]
